FAERS Safety Report 11269713 (Version 2)
Quarter: 2015Q3

REPORT INFORMATION
  Report Type: Report from Study
  Country: PH (occurrence: PH)
  Receive Date: 20150714
  Receipt Date: 20150727
  Transmission Date: 20151125
  Serious: Yes (Death, Other)
  Sender: FDA-Public Use
  Company Number: PHHY2015PH084166

PATIENT
  Age: 46 Year
  Sex: Male

DRUGS (2)
  1. EXJADE [Suspect]
     Active Substance: DEFERASIROX
     Indication: PRODUCT USED FOR UNKNOWN INDICATION
     Dosage: 1500 MG, UNK
     Route: 048
     Dates: start: 20150606, end: 20150711
  2. AMLODIPINE [Concomitant]
     Active Substance: AMLODIPINE BESYLATE
     Indication: ARRHYTHMIA
     Route: 065

REACTIONS (11)
  - Somnolence [Fatal]
  - Cardiac arrest [Fatal]
  - Acute myeloid leukaemia [Fatal]
  - Brain death [Fatal]
  - Chest pain [Fatal]
  - Arrhythmia [Fatal]
  - General physical health deterioration [Fatal]
  - Chills [Fatal]
  - Cardiogenic shock [Fatal]
  - Dizziness [Unknown]
  - Febrile neutropenia [Fatal]

NARRATIVE: CASE EVENT DATE: 20150712
